FAERS Safety Report 18807540 (Version 1)
Quarter: 2021Q1

REPORT INFORMATION
  Report Type: Spontaneous
  Country: US (occurrence: US)
  Receive Date: 20210129
  Receipt Date: 20210129
  Transmission Date: 20210419
  Serious: Yes (Hospitalization)
  Sender: FDA-Public Use
  Company Number: None

PATIENT
  Age: 44 Year
  Sex: Male
  Weight: 88.5 kg

DRUGS (1)
  1. YESCARTA [Suspect]
     Active Substance: AXICABTAGENE CILOLEUCEL
     Indication: DIFFUSE LARGE B-CELL LYMPHOMA
     Dates: start: 20201214, end: 20201214

REACTIONS (10)
  - Neurotoxicity [None]
  - Agitation [None]
  - Pyrexia [None]
  - Small intestinal obstruction [None]
  - Hyponatraemia [None]
  - Abdominal distension [None]
  - Abdominal pain [None]
  - Confusional state [None]
  - Disorientation [None]
  - Inappropriate antidiuretic hormone secretion [None]

NARRATIVE: CASE EVENT DATE: 20201214
